FAERS Safety Report 5521810-3 (Version None)
Quarter: 2007Q4

REPORT INFORMATION
  Report Type: 
  Country: None (occurrence: None)
  Receive Date: 20071120
  Receipt Date: 20070509
  Transmission Date: 20080405
  Serious: No
  Sender: FDA-Public Use
  Company Number: A0650522A

PATIENT
  Sex: Female

DRUGS (1)
  1. DIGOXIN [Suspect]
     Route: 065

REACTIONS (1)
  - DIARRHOEA [None]
